FAERS Safety Report 8219969-2 (Version None)
Quarter: 2012Q1

REPORT INFORMATION
  Report Type: 
  Country: None (occurrence: None)
  Receive Date: 20120319
  Receipt Date: 20120308
  Transmission Date: 20120608
  Serious: Yes (Other)
  Sender: FDA-Public Use
  Company Number: US-ROCHE-791269

PATIENT
  Sex: Female
  Weight: 63.56 kg

DRUGS (2)
  1. ALBUTEROL [Concomitant]
     Indication: ASTHMA
     Dates: start: 19920101
  2. ACCUTANE [Suspect]
     Indication: ACNE
     Route: 065
     Dates: start: 19960101, end: 19980101

REACTIONS (3)
  - MALIGNANT MELANOMA [None]
  - DEPRESSION [None]
  - CROHN'S DISEASE [None]
